FAERS Safety Report 7611095-6 (Version None)
Quarter: 2011Q3

REPORT INFORMATION
  Report Type: 
  Country: None (occurrence: None)
  Receive Date: 20110707
  Receipt Date: 20110624
  Transmission Date: 20111222
  Serious: Yes (Life-Threatening, Hospitalization)
  Sender: FDA-Public Use
  Company Number: 11-383

PATIENT
  Age: 53 Year
  Sex: Female

DRUGS (6)
  1. LOSARTAN [Concomitant]
  2. IBUPROFEN [Suspect]
     Indication: PAIN
     Dosage: 400 MG 3X/DAY
     Route: 048
     Dates: start: 20110603, end: 20110606
  3. ENOXAPARIN [Concomitant]
  4. ACETAMINOPHEN [Concomitant]
  5. DOXAZOSIN MESYLATE [Concomitant]
  6. VANCOMYCIN [Suspect]
     Indication: CELLULITIS
     Dosage: 1 G 2X/DAY, IV
     Route: 042
     Dates: start: 20110529, end: 20110606

REACTIONS (1)
  - RENAL FAILURE ACUTE [None]
